FAERS Safety Report 5056195-2 (Version None)
Quarter: 2006Q3

REPORT INFORMATION
  Report Type: 
  Country: None (occurrence: None)
  Receive Date: 20060717
  Receipt Date: 20060705
  Transmission Date: 20061208
  Serious: Yes (Other)
  Sender: FDA-Public Use
  Company Number: 2006083212

PATIENT
  Age: 71 Year
  Sex: Female
  Weight: 77 kg

DRUGS (10)
  1. LYRICA [Suspect]
     Indication: POST HERPETIC NEURALGIA
     Dosage: 300 MG 150 MG, 2 IN 1 D), ORAL
     Route: 048
     Dates: start: 20050803
  2. ATORVASTATIN CALCIUM [Concomitant]
  3. AZITHROMYCIN [Concomitant]
  4. CITALOPRAM HYDROBROMIDE [Concomitant]
  5. FLUDROCORTISONE ACETATE [Concomitant]
  6. LANSOPRAZOLE [Concomitant]
  7. LERCANIDIPINE [Concomitant]
  8. METFORMIN [Concomitant]
  9. PERINDOPRIL ERBUMINE [Concomitant]
  10. REPAGLINIDE [Concomitant]

REACTIONS (6)
  - BLOOD GLUCOSE INCREASED [None]
  - FATIGUE [None]
  - GLYCOSYLATED HAEMOGLOBIN INCREASED [None]
  - MYOCARDIAL INFARCTION [None]
  - POLYDIPSIA [None]
  - POLYURIA [None]
